FAERS Safety Report 16980759 (Version 4)
Quarter: 2019Q4

REPORT INFORMATION
  Report Type: Report from Study
  Country: CA (occurrence: CA)
  Receive Date: 20191031
  Receipt Date: 20191226
  Transmission Date: 20200122
  Serious: Yes (Hospitalization)
  Sender: FDA-Public Use
  Company Number: NVSC2019CA018711

PATIENT
  Age: 44 Year
  Sex: Male
  Weight: 125.6 kg

DRUGS (8)
  1. TRAMETINIB [Suspect]
     Active Substance: TRAMETINIB
     Indication: MALIGNANT MELANOMA
     Dosage: 2 MG, QD
     Route: 048
     Dates: start: 20190910, end: 20191020
  2. DABRAFENIB [Suspect]
     Active Substance: DABRAFENIB
     Indication: MALIGNANT MELANOMA
     Dosage: 150 MG, BID
     Route: 048
     Dates: start: 20190910, end: 20191020
  3. GABAPENTIN. [Concomitant]
     Active Substance: GABAPENTIN
     Route: 065
     Dates: start: 20190924
  4. BENADRYL [Concomitant]
     Active Substance: DIPHENHYDRAMINE HYDROCHLORIDE
     Route: 065
     Dates: start: 20190911
  5. GABAPENTIN. [Concomitant]
     Active Substance: GABAPENTIN
     Indication: NEURALGIA
     Dosage: UNK
     Route: 065
     Dates: start: 20190924
  6. ALEVE [Concomitant]
     Active Substance: NAPROXEN SODIUM
     Indication: NEURALGIA
     Dosage: UNK
     Route: 065
     Dates: start: 20190621
  7. ALEVE [Concomitant]
     Active Substance: NAPROXEN SODIUM
     Route: 065
     Dates: start: 20190621
  8. BENADRYL [Concomitant]
     Active Substance: DIPHENHYDRAMINE HYDROCHLORIDE
     Indication: RASH MACULO-PAPULAR
     Dosage: UNK
     Route: 065
     Dates: start: 20190911

REACTIONS (1)
  - Pyrexia [Recovered/Resolved with Sequelae]

NARRATIVE: CASE EVENT DATE: 20191020
